FAERS Safety Report 5919622-1 (Version None)
Quarter: 2008Q4

REPORT INFORMATION
  Report Type: 
  Country: None (occurrence: None)
  Receive Date: 20081015
  Receipt Date: 20081008
  Transmission Date: 20090506
  Serious: Yes (Death)
  Sender: FDA-Public Use
  Company Number: US-GILEAD-2008-0018468

PATIENT
  Sex: Female
  Weight: 59.02 kg

DRUGS (6)
  1. LETAIRIS [Suspect]
     Indication: PULMONARY ARTERIAL HYPERTENSION
     Route: 048
     Dates: start: 20080913, end: 20081005
  2. REVATIO [Concomitant]
  3. LASIX [Concomitant]
  4. PROTONIX [Concomitant]
  5. FLOVENT [Concomitant]
  6. CALCIUM [Concomitant]

REACTIONS (1)
  - PULMONARY HYPERTENSION [None]
